FAERS Safety Report 7260908-9 (Version None)
Quarter: 2011Q1

REPORT INFORMATION
  Report Type: 
  Country: None (occurrence: None)
  Receive Date: 20110130
  Receipt Date: 20101221
  Transmission Date: 20110831
  Serious: No
  Sender: FDA-Public Use
  Company Number: US-ABBOTT-10P-163-0693830-00

PATIENT
  Sex: Male
  Weight: 72.64 kg

DRUGS (4)
  1. OLUX [Concomitant]
     Indication: PSORIASIS
     Dosage: FOAM
     Route: 061
  2. HUMIRA [Suspect]
     Dosage: APPROXIMATELY 3 TO 4 MONTHS STOPPED MEDICATION BECAUSE OF NO INSURANCE
     Route: 058
  3. HUMIRA [Suspect]
     Indication: PSORIASIS
     Route: 058
  4. HUMIRA [Suspect]
     Dosage: PRESCRIBED EVERY OTHER WEEK, BUT WAS TAKING WEEKLING DOSING IN ERROR
     Route: 058
     Dates: start: 20101022

REACTIONS (1)
  - INCORRECT DOSE ADMINISTERED [None]
